FAERS Safety Report 23099750 (Version 1)
Quarter: 2023Q4

REPORT INFORMATION
  Report Type: Spontaneous
  Country: US (occurrence: None)
  Receive Date: 20231023
  Receipt Date: 20231023
  Transmission Date: 20240110
  Serious: Yes (Other)
  Sender: FDA-Public Use
  Company Number: None

PATIENT
  Age: 0 Year
  Sex: Male
  Weight: 67.5 kg

DRUGS (6)
  1. CLOBETASOL PROPIONATE [Suspect]
     Active Substance: CLOBETASOL PROPIONATE
     Indication: Nail discolouration
     Route: 062
  2. TADALAFIL [Suspect]
     Active Substance: TADALAFIL
  3. Men 50 plus advanced multivitamin [Concomitant]
  4. FISH OIL [Concomitant]
     Active Substance: FISH OIL
  5. VITAMIN D3 [Concomitant]
     Active Substance: CHOLECALCIFEROL
  6. ASPIRIN [Concomitant]
     Active Substance: ASPIRIN

REACTIONS (2)
  - Erectile dysfunction [None]
  - Drug ineffective [None]

NARRATIVE: CASE EVENT DATE: 19541110
